FAERS Safety Report 23070002 (Version 1)
Quarter: 2023Q4

REPORT INFORMATION
  Report Type: Spontaneous
  Country: JP (occurrence: JP)
  Receive Date: 20231016
  Receipt Date: 20231016
  Transmission Date: 20240110
  Serious: Yes (Hospitalization, Other)
  Sender: FDA-Public Use
  Company Number: JP-ferring-EVA202301267FERRINGPH

PATIENT

DRUGS (2)
  1. DESMOPRESSIN ACETATE [Suspect]
     Active Substance: DESMOPRESSIN ACETATE
     Indication: Diabetes insipidus
     Dosage: 60 UG, 1 TIME DAILY IN THE AFTERNOON
     Route: 065
     Dates: end: 2023
  2. DESMOPRESSIN ACETATE [Suspect]
     Active Substance: DESMOPRESSIN ACETATE
     Indication: Diabetes insipidus
     Dosage: 120 UG, 1 TIME DAILY AT BEDTIME
     Route: 065
     Dates: end: 2023

REACTIONS (3)
  - Fall [Unknown]
  - Movement disorder [Unknown]
  - Hyponatraemia [Recovered/Resolved]

NARRATIVE: CASE EVENT DATE: 20230101
